FAERS Safety Report 8592701-9 (Version None)
Quarter: 2012Q3

REPORT INFORMATION
  Report Type: 
  Country: None (occurrence: None)
  Receive Date: 20120814
  Receipt Date: 20120710
  Transmission Date: 20120928
  Serious: No
  Sender: FDA-Public Use
  Company Number: US-COVIDIEN/TYCO HEALTHCARE/MALLINCKRODT-T201202789

PATIENT
  Sex: Female

DRUGS (9)
  1. CYMBALTA [Concomitant]
  2. XANAX [Concomitant]
  3. ROXICODONE [Concomitant]
  4. FENTANYL [Concomitant]
     Dosage: UNK
  5. COLCHICINE DERIVATIVES [Concomitant]
  6. OXYCODONE [Concomitant]
  7. LYRICA [Concomitant]
  8. FENTANYL [Suspect]
     Indication: PAIN
     Dosage: 100 UG/HR, Q72 HOURS
     Route: 062
     Dates: start: 20120708
  9. MOXICAM                            /01044401/ [Concomitant]

REACTIONS (3)
  - FEELING ABNORMAL [None]
  - CRYING [None]
  - DRUG INEFFECTIVE [None]
